FAERS Safety Report 6054017-4 (Version None)
Quarter: 2009Q1

REPORT INFORMATION
  Report Type: 
  Country: None (occurrence: None)
  Receive Date: 20090127
  Receipt Date: 20090115
  Transmission Date: 20090719
  Serious: Yes (Hospitalization, Other)
  Sender: FDA-Public Use
  Company Number: US-PFIZER INC-2008070422

PATIENT
  Sex: Female
  Weight: 131.5 kg

DRUGS (11)
  1. DILANTIN-125 [Suspect]
     Indication: CONVULSION
  2. CLONAZEPAM [Concomitant]
  3. NYSTATIN [Concomitant]
     Dates: start: 20080319
  4. GUAIFENESIN DM [Concomitant]
     Dates: start: 20080319
  5. GUAIFENESIN [Concomitant]
  6. ACETYLSALICYLIC ACID [Concomitant]
  7. TOPAMAX [Concomitant]
  8. PROZAC [Concomitant]
  9. BUPROPION HCL [Concomitant]
  10. CLOBAZAM [Concomitant]
  11. PREDNISONE [Concomitant]

REACTIONS (16)
  - AORTIC DISORDER [None]
  - BRONCHITIS [None]
  - CARDIOMEGALY [None]
  - CHOLELITHIASIS [None]
  - DEPRESSION [None]
  - DRUG HYPERSENSITIVITY [None]
  - LIVER DISORDER [None]
  - MALIGNANT HYPERTENSION [None]
  - MITRAL VALVE INCOMPETENCE [None]
  - OBESITY [None]
  - RENAL FAILURE ACUTE [None]
  - SINUS DISORDER [None]
  - SLEEP APNOEA SYNDROME [None]
  - STEVENS-JOHNSON SYNDROME [None]
  - TRICUSPID VALVE INCOMPETENCE [None]
  - VIRAL INFECTION [None]
